FAERS Safety Report 6019238-5 (Version None)
Quarter: 2008Q4

REPORT INFORMATION
  Report Type: 
  Country: None (occurrence: None)
  Receive Date: 20081224
  Receipt Date: 20081212
  Transmission Date: 20090506
  Serious: Yes (Hospitalization)
  Sender: FDA-Public Use
  Company Number: NO-PFIZER INC-2008154746

PATIENT

DRUGS (7)
  1. AZITHROMYCIN [Suspect]
     Indication: ANTIBIOTIC PROPHYLAXIS
     Route: 048
     Dates: start: 20081107, end: 20081107
  2. VOLTAREN [Concomitant]
     Indication: ABDOMINAL PAIN
     Route: 030
     Dates: start: 20081108
  3. BENZYLPENICILLIN [Concomitant]
     Indication: SEPSIS
     Dosage: 3 G, 4X/DAY
     Route: 051
     Dates: start: 20081108, end: 20081120
  4. PROGESTERONE [Concomitant]
     Indication: DYSMENORRHOEA
  5. KETOBEMIDONE HYDROCHLORIDE [Concomitant]
     Indication: ABDOMINAL PAIN
     Route: 042
     Dates: start: 20081108
  6. GARAMYCIN [Concomitant]
     Indication: INFECTION
     Route: 051
     Dates: start: 20081108, end: 20081108
  7. ACETAMINOPHEN [Concomitant]
     Indication: PROCEDURAL PAIN
     Route: 048
     Dates: start: 20081107, end: 20081108

REACTIONS (2)
  - HEPATIC FAILURE [None]
  - HEPATIC NECROSIS [None]
